FAERS Safety Report 7832481-5 (Version None)
Quarter: 2011Q4

REPORT INFORMATION
  Report Type: 
  Country: None (occurrence: None)
  Receive Date: 20111023
  Receipt Date: 20111012
  Transmission Date: 20120403
  Serious: Yes (Death, Life-Threatening, Hospitalization)
  Sender: FDA-Public Use
  Company Number: US-MYLANLABS-2011S1014562

PATIENT
  Age: 77 Year
  Sex: Female

DRUGS (10)
  1. ALLOPURINOL [Suspect]
     Indication: BLOOD URIC ACID
     Dates: start: 20091123
  2. ASPIRIN [Concomitant]
     Route: 048
  3. IBUPROFEN [Suspect]
  4. LISINOPRIL [Concomitant]
     Route: 048
  5. FUROSEMIDE [Concomitant]
     Route: 048
  6. LABETALOL HCL [Concomitant]
     Route: 048
  7. ZEMPLAR [Concomitant]
     Route: 048
  8. LIPITOR [Concomitant]
     Route: 048
  9. AMLODIPINE [Suspect]
     Route: 048
     Dates: start: 20091209
  10. ULORIC [Suspect]
     Indication: GOUT
     Dates: start: 20091228

REACTIONS (3)
  - RENAL FAILURE ACUTE [None]
  - TOXIC EPIDERMAL NECROLYSIS [None]
  - RESPIRATORY FAILURE [None]
